FAERS Safety Report 8613240-2 (Version None)
Quarter: 2012Q3

REPORT INFORMATION
  Report Type: 
  Country: None (occurrence: None)
  Receive Date: 20120822
  Receipt Date: 20120813
  Transmission Date: 20120928
  Serious: Yes (Other)
  Sender: FDA-Public Use
  Company Number: CHPA2012US018054

PATIENT
  Age: 61 Year
  Sex: Female

DRUGS (2)
  1. EXCEDRIN (MIGRAINE) [Suspect]
     Indication: MIGRAINE
     Dosage: 2 DF, PRN
     Route: 048
  2. LOSARTAN POTASSIUM AND HYDROCHLOROTHIAZIDE [Concomitant]
     Indication: HYPERTENSION

REACTIONS (7)
  - FALL [None]
  - LOWER LIMB FRACTURE [None]
  - HEAD INJURY [None]
  - DIABETES MELLITUS [None]
  - WRIST FRACTURE [None]
  - LIGAMENT RUPTURE [None]
  - DRUG INEFFECTIVE [None]
